FAERS Safety Report 9161122 (Version 4)
Quarter: 2013Q2

REPORT INFORMATION
  Report Type: Spontaneous
  Country: US (occurrence: US)
  Receive Date: 20130313
  Receipt Date: 20130517
  Transmission Date: 20140414
  Serious: Yes (Other)
  Sender: FDA-Public Use
  Company Number: CHPA2013US004330

PATIENT
  Age: 70 Year
  Sex: Female

DRUGS (6)
  1. VOLTAREN GEL [Suspect]
     Indication: OSTEOARTHRITIS
     Dosage: UNK, QD
     Route: 061
     Dates: start: 20121113
  2. VOLTAREN GEL [Suspect]
     Indication: BURSITIS
  3. LIDOCAINE [Suspect]
     Indication: OSTEOARTHRITIS
     Dosage: 1 PATCH BID
  4. ALENDRONATE [Suspect]
  5. MELOXICAM [Concomitant]
     Indication: INTERVERTEBRAL DISC DEGENERATION
     Dosage: UNK
     Dates: end: 201301
  6. TRAMADOL [Concomitant]
     Dosage: UNK
     Dates: end: 201301

REACTIONS (10)
  - Parathyroid tumour benign [Recovered/Resolved]
  - Ligament rupture [Not Recovered/Not Resolved]
  - Meniscus injury [Not Recovered/Not Resolved]
  - Chest discomfort [Unknown]
  - Bone pain [Unknown]
  - Gastrointestinal disorder [Unknown]
  - Joint injury [Not Recovered/Not Resolved]
  - Therapeutic response unexpected [Unknown]
  - Off label use [Unknown]
  - Drug administered at inappropriate site [Unknown]
